FAERS Safety Report 4882161-3 (Version None)
Quarter: 2006Q1

REPORT INFORMATION
  Report Type: 
  Country: None (occurrence: None)
  Receive Date: 20060117
  Receipt Date: 20060105
  Transmission Date: 20060701
  Serious: Yes (Life-Threatening, Hospitalization)
  Sender: FDA-Public Use
  Company Number: US-AMGEN-US163682

PATIENT
  Age: 49 Year
  Sex: Male

DRUGS (9)
  1. SENSIPAR [Suspect]
     Indication: HYPERPARATHYROIDISM SECONDARY
     Route: 048
     Dates: start: 20051201, end: 20051201
  2. EPOGEN [Suspect]
  3. TOPROL-XL [Concomitant]
  4. VERAPAMIL [Concomitant]
  5. MONOPRIL [Concomitant]
  6. PLAVIX [Concomitant]
  7. NEPHRO-VITE [Concomitant]
  8. FOSRENOL [Concomitant]
  9. ZEMPLAR [Concomitant]

REACTIONS (6)
  - BRADYCARDIA [None]
  - CONDITION AGGRAVATED [None]
  - CONVULSION [None]
  - HYPERTENSION [None]
  - HYPOTENSION [None]
  - SYNCOPE [None]
